FAERS Safety Report 22675850 (Version 9)
Quarter: 2024Q1

REPORT INFORMATION
  Report Type: Spontaneous
  Country: JP (occurrence: JP)
  Receive Date: 20230706
  Receipt Date: 20240223
  Transmission Date: 20240410
  Serious: Yes (Death, Life-Threatening, Hospitalization, Other)
  Sender: FDA-Public Use
  Company Number: JP-UNITED THERAPEUTICS-UNT-2023-018880

PATIENT
  Age: 51 Year
  Sex: Female
  Weight: 40.6 kg

DRUGS (8)
  1. TYVASO [Suspect]
     Active Substance: TREPROSTINIL
     Indication: Pulmonary arterial hypertension
     Dosage: 18 ?G, QID
     Dates: start: 20230608, end: 202306
  2. TYVASO [Suspect]
     Active Substance: TREPROSTINIL
     Indication: Pulmonary veno-occlusive disease
     Dosage: 24 ?G, QID
     Dates: start: 20230614, end: 2023
  3. TYVASO [Suspect]
     Active Substance: TREPROSTINIL
     Dosage: 18 ?G, QID
     Dates: start: 2023, end: 202309
  4. TYVASO [Suspect]
     Active Substance: TREPROSTINIL
     Dosage: 24 ?G, QID
     Dates: start: 202309, end: 202309
  5. TYVASO [Suspect]
     Active Substance: TREPROSTINIL
     Dosage: 18 ?G, QID
     Dates: start: 202309, end: 20231124
  6. MACITENTAN [Concomitant]
     Active Substance: MACITENTAN
     Indication: Product used for unknown indication
     Dosage: UNK
     Route: 048
     Dates: start: 20190201
  7. SELEXIPAG [Concomitant]
     Active Substance: SELEXIPAG
     Indication: Product used for unknown indication
     Dosage: 1600 MG, BID
     Route: 048
     Dates: start: 20200309
  8. RIOCIGUAT [Concomitant]
     Active Substance: RIOCIGUAT
     Indication: Product used for unknown indication
     Dosage: UNK
     Route: 048
     Dates: start: 20190513

REACTIONS (8)
  - Right ventricular failure [Fatal]
  - Pulmonary congestion [Not Recovered/Not Resolved]
  - Cardiac failure [Recovering/Resolving]
  - Circulatory collapse [Unknown]
  - Pulmonary oedema [Recovering/Resolving]
  - Cardiomegaly [Unknown]
  - Pulmonary veno-occlusive disease [Unknown]
  - Off label use [Not Recovered/Not Resolved]

NARRATIVE: CASE EVENT DATE: 20230608
